FAERS Safety Report 15049415 (Version 3)
Quarter: 2018Q4

REPORT INFORMATION
  Report Type: Spontaneous
  Country: FR (occurrence: FR)
  Receive Date: 20180622
  Receipt Date: 20181121
  Transmission Date: 20190204
  Serious: Yes (Hospitalization)
  Sender: FDA-Public Use
  Company Number: FR-JNJFOC-20180617549

PATIENT
  Age: 35 Year
  Sex: Female
  Weight: 57 kg

DRUGS (5)
  1. PROVAMES [Suspect]
     Active Substance: ESTRADIOL
     Indication: HYPERANDROGENISM
     Route: 048
     Dates: end: 20180323
  2. MINOXIDIL. [Suspect]
     Active Substance: MINOXIDIL
     Route: 003
  3. PROGESTOGEL [Concomitant]
     Indication: ALOPECIA
     Route: 003
  4. MINOXIDIL. [Suspect]
     Active Substance: MINOXIDIL
     Indication: HYPERANDROGENISM
     Route: 003
     Dates: end: 20180323
  5. CYPROTERONE ACETATE [Suspect]
     Active Substance: CYPROTERONE ACETATE
     Indication: HYPERANDROGENISM
     Route: 048
     Dates: start: 1996, end: 20180323

REACTIONS (1)
  - Meningioma [Not Recovered/Not Resolved]

NARRATIVE: CASE EVENT DATE: 20180323
